FAERS Safety Report 10594556 (Version 2)
Quarter: 2015Q1

REPORT INFORMATION
  Report Type: Report from Study
  Country: DE (occurrence: DE)
  Receive Date: 20141120
  Receipt Date: 20150206
  Transmission Date: 20150720
  Serious: Yes (Life-Threatening, Hospitalization, Other)
  Sender: FDA-Public Use
  Company Number: DE-009507513-1411DEU007293

PATIENT
  Age: 71 Year
  Sex: Female
  Weight: 55 kg

DRUGS (7)
  1. CARBOPLATIN. [Suspect]
     Active Substance: CARBOPLATIN
     Dosage: 428.15 MG, UNKNOWN
     Dates: start: 20140614
  2. TEMSIROLIMUS [Suspect]
     Active Substance: TEMSIROLIMUS
     Dosage: 50 MG, IN EACH CYCLE ON DAY 1 AND DAY 8
     Dates: start: 20140612
  3. CYTARABINE. [Suspect]
     Active Substance: CYTARABINE
     Dosage: 6520MG, UNK
     Dates: start: 20140615
  4. AMLODIPINE [Concomitant]
     Active Substance: AMLODIPINE BESYLATE
     Indication: HYPERTENSION
     Dosage: TOTAL DAILY DOSE: 10MG
     Route: 048
     Dates: start: 20140621
  5. DEXAMETHASONE. [Suspect]
     Active Substance: DEXAMETHASONE
     Dosage: 40 MG, UNKNOWN
     Dates: start: 20140614
  6. RITUXIMAB [Suspect]
     Active Substance: RITUXIMAB
     Dosage: 611.25 MG, UNKNOWN
     Dates: start: 20140613
  7. PANTOZOL [Concomitant]
     Active Substance: PANTOPRAZOLE SODIUM
     Indication: PROPHYLAXIS
     Dosage: TOTAL DAILY DOSE: 40MG
     Route: 048
     Dates: start: 20140606

REACTIONS (4)
  - Anaemia [Recovering/Resolving]
  - Sepsis [Recovered/Resolved]
  - Acute kidney injury [Recovered/Resolved]
  - Pneumonia [Recovered/Resolved]

NARRATIVE: CASE EVENT DATE: 20140617
